FAERS Safety Report 16342294 (Version 1)
Quarter: 2019Q2

REPORT INFORMATION
  Report Type: Spontaneous
  Country: DE (occurrence: DE)
  Receive Date: 20190522
  Receipt Date: 20190522
  Transmission Date: 20190711
  Serious: Yes (Hospitalization, Other)
  Sender: FDA-Public Use
  Company Number: DE-EMD SERONO-E2B_90067969

PATIENT
  Age: 43 Year
  Sex: Female

DRUGS (3)
  1. MENOGON HP [Suspect]
     Active Substance: MENOTROPINS
     Indication: ASSISTED REPRODUCTIVE TECHNOLOGY
  2. CETROTIDE [Suspect]
     Active Substance: CETRORELIX ACETATE
     Indication: ASSISTED REPRODUCTIVE TECHNOLOGY
  3. PREGNYL [Suspect]
     Active Substance: CHORIOGONADOTROPIN ALFA
     Indication: ASSISTED REPRODUCTIVE TECHNOLOGY

REACTIONS (2)
  - Bladder injury [Recovered/Resolved]
  - Haemorrhage [Recovered/Resolved]

NARRATIVE: CASE EVENT DATE: 20190430
